FAERS Safety Report 11227265 (Version 1)
Quarter: 2015Q2

REPORT INFORMATION
  Report Type: Spontaneous
  Country: US (occurrence: US)
  Receive Date: 20150630
  Receipt Date: 20150630
  Transmission Date: 20150821
  Serious: No
  Sender: FDA-Public Use
  Company Number: US-BAYER-2015-364530

PATIENT
  Age: 85 Year
  Sex: Male
  Weight: 74.83 kg

DRUGS (17)
  1. QUININE SULPHATE [Concomitant]
     Active Substance: QUININE SULFATE
     Dosage: UNK
  2. MIRALAX [Suspect]
     Active Substance: POLYETHYLENE GLYCOL 3350
     Indication: CONSTIPATION
     Dosage: 1 DOSE, PRN
     Route: 048
     Dates: start: 201409
  3. FISH OIL [Concomitant]
     Active Substance: FISH OIL
     Dosage: UNK
  4. SENNA [SENNA ALEXANDRINA] [Concomitant]
     Dosage: UNK
  5. VITAMIN D [COLECALCIFEROL] [Concomitant]
     Dosage: UNK
  6. CRESTOR [Concomitant]
     Active Substance: ROSUVASTATIN CALCIUM
     Dosage: UNK
  7. SENNA [SENNA ALEXANDRINA] [Concomitant]
     Dosage: UNK
  8. GLYBURIDE. [Concomitant]
     Active Substance: GLYBURIDE
     Dosage: UNK
  9. ZETIA [Concomitant]
     Active Substance: EZETIMIBE
     Dosage: UNK
  10. LISINOPRIL. [Concomitant]
     Active Substance: LISINOPRIL
     Dosage: UNK
  11. FINASTERIDE. [Concomitant]
     Active Substance: FINASTERIDE
     Dosage: UNK
  12. NAPROXEN. [Concomitant]
     Active Substance: NAPROXEN
     Dosage: UNK
  13. BAYER ASPIRIN REGIMEN REGULAR 325 MG STRENGTH [Concomitant]
     Active Substance: ASPIRIN
     Dosage: UNK
  14. FLOMAX [Concomitant]
     Active Substance: TAMSULOSIN HYDROCHLORIDE
     Dosage: UNK
  15. METAMUCIL REGULAR [Concomitant]
     Dosage: UNK
  16. TYLENOL [Concomitant]
     Active Substance: ACETAMINOPHEN
     Dosage: UNK
  17. CYMBALTA [Concomitant]
     Active Substance: DULOXETINE HYDROCHLORIDE
     Dosage: UNK

REACTIONS (1)
  - Drug ineffective [Unknown]
